FAERS Safety Report 17484529 (Version 2)
Quarter: 2020Q1

REPORT INFORMATION
  Report Type: Spontaneous
  Country: CZ (occurrence: CZ)
  Receive Date: 20200302
  Receipt Date: 20200311
  Transmission Date: 20200409
  Serious: Yes (Disabling, Other)
  Sender: FDA-Public Use
  Company Number: CZ-MYLANLABS-2020M1021708

PATIENT
  Age: 30 Year
  Sex: Male

DRUGS (8)
  1. LAMOTRIGINE. [Suspect]
     Active Substance: LAMOTRIGINE
     Indication: IDIOPATHIC GENERALISED EPILEPSY
     Dosage: 100 MILLIGRAM, QD
     Route: 048
     Dates: end: 2015
  2. LAMOTRIGINE. [Suspect]
     Active Substance: LAMOTRIGINE
     Indication: GENERALISED TONIC-CLONIC SEIZURE
  3. CARBAMAZEPINE. [Suspect]
     Active Substance: CARBAMAZEPINE
     Indication: IDIOPATHIC GENERALISED EPILEPSY
     Dosage: 600 MILLIGRAM, QD
     Route: 048
     Dates: end: 2015
  4. CLONAZEPAM. [Suspect]
     Active Substance: CLONAZEPAM
     Indication: GENERALISED TONIC-CLONIC SEIZURE
  5. CLONAZEPAM. [Suspect]
     Active Substance: CLONAZEPAM
     Indication: IDIOPATHIC GENERALISED EPILEPSY
     Dosage: UNK UNK, QD(2-3 MG   )
     Route: 065
     Dates: end: 2015
  6. VALPROIC ACID. [Suspect]
     Active Substance: VALPROIC ACID
     Indication: GENERALISED TONIC-CLONIC SEIZURE
     Dosage: 2000 MILLIGRAM, QD
     Route: 065
     Dates: end: 2015
  7. VALPROIC ACID. [Suspect]
     Active Substance: VALPROIC ACID
     Indication: IDIOPATHIC GENERALISED EPILEPSY
  8. CARBAMAZEPINE. [Suspect]
     Active Substance: CARBAMAZEPINE
     Indication: GENERALISED TONIC-CLONIC SEIZURE

REACTIONS (12)
  - Weight increased [Recovered/Resolved]
  - Depression [Recovered/Resolved]
  - Thermal burn [Recovered/Resolved]
  - Osteopenia [Recovered/Resolved]
  - Drug abuse [Unknown]
  - Insomnia [Recovered/Resolved]
  - Joint injury [Recovered/Resolved]
  - Tremor [Recovered/Resolved]
  - Drug withdrawal syndrome [Recovered/Resolved]
  - Alopecia [Recovered/Resolved]
  - Loss of personal independence in daily activities [Recovered/Resolved]
  - Drug ineffective [Unknown]

NARRATIVE: CASE EVENT DATE: 201604
